FAERS Safety Report 13010058 (Version 1)
Quarter: 2016Q4

REPORT INFORMATION
  Report Type: Spontaneous
  Country: US (occurrence: US)
  Receive Date: 20161208
  Receipt Date: 20161208
  Transmission Date: 20170207
  Serious: No
  Sender: FDA-Public Use
  Company Number: US-BAYER-2016-229615

PATIENT
  Age: 67 Year
  Sex: Male
  Weight: 90.2 kg

DRUGS (10)
  1. VITAMIN D [Concomitant]
     Active Substance: CHOLECALCIFEROL
  2. SIROLIMUS. [Concomitant]
     Active Substance: SIROLIMUS
  3. CELLCEPT [Concomitant]
     Active Substance: MYCOPHENOLATE MOFETIL\MYCOPHENOLATE MOFETIL HYDROCHLORIDE
     Dosage: 500 MG, BID
  4. MAGNESIUM [Concomitant]
     Active Substance: MAGNESIUM
  5. INSULIN [Concomitant]
     Active Substance: INSULIN NOS
  6. RAPAMUNE [Concomitant]
     Active Substance: SIROLIMUS
  7. TACROLIMUS. [Concomitant]
     Active Substance: TACROLIMUS
     Dosage: 1.5 MG, QD IN DIVIDED DOSES
  8. SIROLIMUS. [Concomitant]
     Active Substance: SIROLIMUS
     Dosage: 2 MG, QD
  9. ALEVE [Suspect]
     Active Substance: NAPROXEN SODIUM
     Dosage: UNK
  10. MIRABEGRON [Concomitant]
     Active Substance: MIRABEGRON

REACTIONS (1)
  - Drug hypersensitivity [Unknown]
